FAERS Safety Report 8217537-X (Version None)
Quarter: 2012Q1

REPORT INFORMATION
  Report Type: 
  Country: None (occurrence: None)
  Receive Date: 20120305
  Receipt Date: 20120105
  Transmission Date: 20120608
  Serious: Yes (Hospitalization)
  Sender: FDA-Public Use
  Company Number: 1000026694

PATIENT
  Age: 72 Year
  Sex: Male

DRUGS (13)
  1. SPIRIVA (TIOTROPIUM BROMIDE) (TIOTROPIUM BROMIDE) [Concomitant]
  2. XOPENEX (TIOPTROPIUM BROMIDE) (TIOTROPIUM BROMIDE) [Concomitant]
  3. LORAZEPAM [Concomitant]
  4. CELEXA [Concomitant]
  5. FLOMAX (TAMSULOSIN) (TAMSULOSIN) [Concomitant]
  6. CITRACAL (CALCIUM) (CALCIUM) [Concomitant]
  7. CRESTOR [Concomitant]
  8. FLONASE (FLUTICASONE PROPIONATE) (FLUTICASONE PROPIONATE) [Concomitant]
  9. DALIRESP [Suspect]
     Indication: CHRONIC OBSTRUCTIVE PULMONARY DISEASE
     Dosage: 500 MCG (500 MCG, 1 IN 1 D), ORAL
     Route: 048
     Dates: start: 20110715, end: 20111219
  10. PREDNISONE [Concomitant]
  11. VENTOLIMN HFA (SALBUTAMOL SULFATE) (SALBUTAMOL SULFATE) [Concomitant]
  12. BYSTOLIC [Concomitant]
  13. SYMBICORT (BUDESONIDE W/FORMOTEROL FUMARATE) (BUDESONIDE W/FORMOTEROL [Concomitant]

REACTIONS (3)
  - DIARRHOEA [None]
  - WEIGHT DECREASED [None]
  - ABDOMINAL PAIN [None]
